FAERS Safety Report 13302132 (Version 2)
Quarter: 2017Q2

REPORT INFORMATION
  Report Type: Spontaneous
  Country: US (occurrence: US)
  Receive Date: 20170307
  Receipt Date: 20170519
  Transmission Date: 20170830
  Serious: Yes (Other)
  Sender: FDA-Public Use
  Company Number: US-009507513-1703USA001801

PATIENT
  Age: 17 Year
  Sex: Female
  Weight: 103.86 kg

DRUGS (1)
  1. IMPLANON [Suspect]
     Active Substance: ETONOGESTREL
     Indication: CONTRACEPTION
     Dosage: 1 IMPLANT
     Route: 059
     Dates: start: 20110512

REACTIONS (11)
  - Contusion [Unknown]
  - Device deployment issue [Not Recovered/Not Resolved]
  - Menstrual disorder [Unknown]
  - Complication associated with device [Not Recovered/Not Resolved]
  - Vulvovaginal erythema [Unknown]
  - Kidney infection [Not Recovered/Not Resolved]
  - Amenorrhoea [Unknown]
  - Complication associated with device [Not Recovered/Not Resolved]
  - Incorrect drug administration duration [Not Recovered/Not Resolved]
  - Hirsutism [Unknown]
  - Urinary tract infection [Not Recovered/Not Resolved]

NARRATIVE: CASE EVENT DATE: 20110616
